FAERS Safety Report 25691127 (Version 2)
Quarter: 2025Q3

REPORT INFORMATION
  Report Type: Spontaneous
  Country: US (occurrence: US)
  Receive Date: 20250818
  Receipt Date: 20250825
  Transmission Date: 20251020
  Serious: Yes (Other)
  Sender: DR REDDYS
  Company Number: None

PATIENT
  Age: 73 Year
  Sex: Female

DRUGS (9)
  1. CAPECITABINE [Suspect]
     Active Substance: CAPECITABINE
     Indication: Breast cancer metastatic
     Dosage: CAPECITABINE 1500 MG TWICE DAILY
  2. CAPECITABINE [Suspect]
     Active Substance: CAPECITABINE
     Dosage: CAPECITABINE WAS RESUMED AT A REDUCED DOSE OF 1000 MG TWICE DAILY FOR 3 DAYS
  3. LIDOCAINE [Suspect]
     Active Substance: LIDOCAINE
     Indication: Palmar-plantar erythrodysaesthesia syndrome
  4. LIDOCAINE [Concomitant]
     Active Substance: LIDOCAINE
     Indication: Palmar-plantar erythrodysaesthesia syndrome
  5. BETAMETHASONE DIPROPIONATE [Concomitant]
     Active Substance: BETAMETHASONE DIPROPIONATE
     Indication: Palmar-plantar erythrodysaesthesia syndrome
  6. HALOBETASOL [Concomitant]
     Active Substance: HALOBETASOL
     Indication: Palmar-plantar erythrodysaesthesia syndrome
  7. UREA [Concomitant]
     Active Substance: UREA
     Indication: Palmar-plantar erythrodysaesthesia syndrome
  8. CLOBETASOL [Concomitant]
     Active Substance: CLOBETASOL
     Indication: Palmar-plantar erythrodysaesthesia syndrome
  9. DICLOFENAC [Concomitant]
     Active Substance: DICLOFENAC
     Indication: Pain

REACTIONS (2)
  - Palmar-plantar erythrodysaesthesia syndrome [Recovering/Resolving]
  - Drug ineffective for unapproved indication [Unknown]
